FAERS Safety Report 11605222 (Version 1)
Quarter: 2015Q4

REPORT INFORMATION
  Report Type: Spontaneous
  Country: None (occurrence: None)
  Receive Date: 20151006
  Receipt Date: 20151006
  Transmission Date: 20160304
  Serious: No
  Sender: FDA-Public Use
  Company Number: None

PATIENT
  Age: 64 Year
  Sex: Male
  Weight: 87.54 kg

DRUGS (11)
  1. MVI [Concomitant]
     Active Substance: VITAMINS
  2. LIPITOR [Concomitant]
     Active Substance: ATORVASTATIN CALCIUM
  3. CARDURA [Concomitant]
     Active Substance: DOXAZOSIN MESYLATE
  4. IRBESARTAN. [Concomitant]
     Active Substance: IRBESARTAN
  5. PROTONIX [Concomitant]
     Active Substance: PANTOPRAZOLE SODIUM
  6. METFORMIN [Concomitant]
     Active Substance: METFORMIN HYDROCHLORIDE
  7. VITAMIN D [Concomitant]
     Active Substance: CHOLECALCIFEROL
  8. LEVAQUIN [Suspect]
     Active Substance: LEVOFLOXACIN
     Indication: EPIDIDYMITIS
     Route: 048
     Dates: start: 20150831, end: 20150910
  9. INDERAL [Concomitant]
     Active Substance: PROPRANOLOL HYDROCHLORIDE
  10. ASA [Concomitant]
     Active Substance: ASPIRIN
  11. JANUVIA [Concomitant]
     Active Substance: SITAGLIPTIN PHOSPHATE

REACTIONS (5)
  - Tendon injury [None]
  - Ligament sprain [None]
  - Muscle strain [None]
  - Muscle rupture [None]
  - Ligament rupture [None]

NARRATIVE: CASE EVENT DATE: 20150907
